FAERS Safety Report 8198260-7 (Version None)
Quarter: 2012Q1

REPORT INFORMATION
  Report Type: 
  Country: None (occurrence: None)
  Receive Date: 20120309
  Receipt Date: 20120302
  Transmission Date: 20120608
  Serious: Yes (Other)
  Sender: FDA-Public Use
  Company Number: DE-B.I. PHARMACEUTICALS,INC./RIDGEFIELD-2012-DE-00634DE

PATIENT

DRUGS (2)
  1. EFFIENT [Suspect]
  2. PRADAXA [Suspect]
     Dosage: 220 MG

REACTIONS (1)
  - EMBOLISM ARTERIAL [None]
